FAERS Safety Report 4369241-6 (Version None)
Quarter: 2004Q2

REPORT INFORMATION
  Report Type: 
  Country: None (occurrence: None)
  Receive Date: 20040603
  Receipt Date: 20031201
  Transmission Date: 20050107
  Serious: No
  Sender: FDA-Public Use
  Company Number: US-GLAXOSMITHKLINE-A0441459A

PATIENT
  Sex: Female

DRUGS (1)
  1. AUGMENTIN [Suspect]
     Indication: ILL-DEFINED DISORDER
     Dosage: 2TAB TWICE PER DAY
     Route: 048
     Dates: start: 20030101

REACTIONS (3)
  - ABDOMINAL DISTENSION [None]
  - DYSURIA [None]
  - URINARY TRACT OBSTRUCTION [None]
